FAERS Safety Report 18097096 (Version 1)
Quarter: 2020Q3

REPORT INFORMATION
  Report Type: Spontaneous
  Country: FR (occurrence: FR)
  Receive Date: 20200730
  Receipt Date: 20200730
  Transmission Date: 20201103
  Serious: Yes (Hospitalization)
  Sender: FDA-Public Use
  Company Number: FR-NOVOPROD-741552

PATIENT
  Age: 59 Year
  Sex: Male
  Weight: 65 kg

DRUGS (5)
  1. AMOXICILLINE SODIUM [Suspect]
     Active Substance: AMOXICILLIN SODIUM
     Indication: OSTEITIS
     Dosage: 10 G, QD
     Route: 042
     Dates: start: 20200702, end: 20200706
  2. CLINDAMYCINE [CLINDAMYCIN PHOSPHATE] [Suspect]
     Active Substance: CLINDAMYCIN PHOSPHATE
     Indication: OSTEITIS
     Dosage: 1800 MG, QD
     Route: 042
     Dates: start: 20200702
  3. TOUJEO [Suspect]
     Active Substance: INSULIN GLARGINE
     Indication: TYPE 2 DIABETES MELLITUS
     Dosage: 22 IU, QD
     Route: 058
     Dates: start: 20200703, end: 20200705
  4. NOVORAPID [Suspect]
     Active Substance: INSULIN ASPART
     Indication: TYPE 2 DIABETES MELLITUS
     Dosage: UNK
     Route: 048
     Dates: start: 20200702, end: 20200703
  5. GALVUS [Suspect]
     Active Substance: VILDAGLIPTIN
     Indication: TYPE 2 DIABETES MELLITUS
     Dosage: 100 MG, QD
     Route: 048
     Dates: start: 20200702

REACTIONS (2)
  - Acute kidney injury [Recovering/Resolving]
  - Off label use [Unknown]

NARRATIVE: CASE EVENT DATE: 20200706
